FAERS Safety Report 5041835-4 (Version None)
Quarter: 2006Q2

REPORT INFORMATION
  Report Type: 
  Country: None (occurrence: None)
  Receive Date: 20060630
  Receipt Date: 20060619
  Transmission Date: 20061013
  Serious: Yes (Life-Threatening, Hospitalization, Other)
  Sender: FDA-Public Use
  Company Number: HQ3980628AUG2002

PATIENT
  Age: 51 Year
  Sex: Female
  Weight: 48.5 kg

DRUGS (11)
  1. MYLOTARG [Suspect]
     Indication: ACUTE MYELOID LEUKAEMIA
     Dosage: 13 MG 1X PER 1 DAY, INTRAVENOUS
     Route: 042
     Dates: start: 20020704, end: 20020704
  2. ZYPREXA [Concomitant]
  3. ZOLOFT [Concomitant]
  4. ACYCLOVIR [Concomitant]
  5. ACYCLOVIR [Concomitant]
  6. DIFLUCAN [Concomitant]
  7. LEVAQUIN [Concomitant]
  8. PROGRAF [Concomitant]
  9. CYTARABINE [Concomitant]
  10. CYTARABINE [Concomitant]
  11. NEUPOGEN [Concomitant]

REACTIONS (14)
  - ABDOMINAL DISTENSION [None]
  - ALANINE AMINOTRANSFERASE INCREASED [None]
  - ASPARTATE AMINOTRANSFERASE INCREASED [None]
  - ATELECTASIS [None]
  - BLOOD ALKALINE PHOSPHATASE INCREASED [None]
  - BLOOD LACTATE DEHYDROGENASE INCREASED [None]
  - DIARRHOEA [None]
  - DYSPNOEA [None]
  - HAEMANGIOMA OF LIVER [None]
  - HEPATOMEGALY [None]
  - LIVER FUNCTION TEST ABNORMAL [None]
  - LUNG CONSOLIDATION [None]
  - TACHYPNOEA [None]
  - VENOOCCLUSIVE LIVER DISEASE [None]
